FAERS Safety Report 7073181-1 (Version None)
Quarter: 2010Q4

REPORT INFORMATION
  Report Type: 
  Country: None (occurrence: None)
  Receive Date: 20101029
  Receipt Date: 20100505
  Transmission Date: 20110411
  Serious: No
  Sender: FDA-Public Use
  Company Number: A0858401A

PATIENT
  Sex: Female

DRUGS (9)
  1. ADVAIR DISKUS 100/50 [Suspect]
     Indication: PRODUCT USED FOR UNKNOWN INDICATION
     Route: 055
     Dates: start: 20030101, end: 20030101
  2. ADVAIR DISKUS 100/50 [Suspect]
     Indication: ASTHMA
     Dosage: 1PUFF TWICE PER DAY
     Route: 055
     Dates: start: 20091101
  3. FLUTICASONE PROPIONATE [Suspect]
     Dosage: 2SPR THREE TIMES PER DAY
     Route: 045
  4. LISINOPRIL [Concomitant]
     Dates: start: 20100301
  5. ESTROGEN [Concomitant]
  6. ZOLOFT [Concomitant]
  7. IPRATROPIUM BROMIDE [Concomitant]
  8. FLUTICASONE PROPIONATE [Concomitant]
  9. PROTONIX [Concomitant]

REACTIONS (5)
  - CHEST DISCOMFORT [None]
  - DYSPNOEA [None]
  - FATIGUE [None]
  - HYPOTENSION [None]
  - PERFORMANCE STATUS DECREASED [None]
